FAERS Safety Report 10048063 (Version 4)
Quarter: 2014Q2

REPORT INFORMATION
  Report Type: Spontaneous
  Country: JP (occurrence: JP)
  Receive Date: 20140331
  Receipt Date: 20140418
  Transmission Date: 20141212
  Serious: Yes (Hospitalization, Other)
  Sender: FDA-Public Use
  Company Number: JP-TAKEDA-2014TJP003953

PATIENT
  Age: 66 Year
  Sex: Male
  Weight: 40 kg

DRUGS (16)
  1. TAKEPRON OD TABLETS 15 [Suspect]
     Indication: GASTRIC ULCER
     Dosage: 30 MG, QD
     Route: 048
     Dates: start: 20140205, end: 20140307
  2. VECTIBIX [Concomitant]
     Indication: COLON CANCER
     Dosage: UNK
     Route: 041
  3. OXALIPLATIN [Concomitant]
     Indication: COLON CANCER
     Dosage: UNK
     Route: 041
  4. FLUOROURACIL [Concomitant]
     Indication: COLON CANCER
     Dosage: UNK
     Route: 040
  5. CALCIUM LEVOFOLINATE [Concomitant]
     Indication: COLON CANCER
     Dosage: UNK
     Route: 041
  6. ALBUMIN TANNATE [Concomitant]
     Indication: DIARRHOEA
     Dosage: 1 G, TID
     Route: 048
     Dates: start: 20140217
  7. MAGTECT [Concomitant]
     Indication: ABDOMINAL PAIN UPPER
     Dosage: 10 ML, QD
     Route: 048
     Dates: start: 20140208
  8. PHELLOBERIN [Concomitant]
     Indication: DIARRHOEA
     Dosage: 2 DF, TID
     Route: 048
     Dates: start: 20140205
  9. BIO-THREE [Concomitant]
     Indication: DIARRHOEA
     Dosage: 1 DF, TID
     Route: 048
     Dates: start: 20140205
  10. CALONAL [Concomitant]
     Indication: WOUND COMPLICATION
     Dosage: 1 DF, TID
     Route: 048
     Dates: start: 20140209, end: 20140307
  11. DEPAS [Concomitant]
     Indication: INSOMNIA
     Dosage: 0.5 MG, QD
     Route: 048
     Dates: start: 20140209
  12. LOPEMIN [Concomitant]
     Dosage: 1 MG, BID
     Route: 048
     Dates: start: 20140219
  13. OLMETEC [Concomitant]
     Dosage: 20 MG, QD
     Route: 048
  14. PAPAVER SOMNIFERUM TINCTURE [Concomitant]
     Dosage: 0.5 ML, TID
     Route: 048
     Dates: start: 20140301
  15. ALLELOCK [Concomitant]
     Dosage: 5 MG, BID
     Route: 048
     Dates: start: 20140228
  16. KALIMATE [Concomitant]
     Dosage: 1 DF, TID
     Route: 048

REACTIONS (3)
  - Neutropenia [Recovered/Resolved]
  - Renal failure acute [Recovered/Resolved]
  - Diarrhoea [Recovered/Resolved]
